FAERS Safety Report 7760873-1 (Version None)
Quarter: 2011Q3

REPORT INFORMATION
  Report Type: 
  Country: None (occurrence: None)
  Receive Date: 20110919
  Receipt Date: 20110918
  Transmission Date: 20111222
  Serious: Yes (Other)
  Sender: FDA-Public Use
  Company Number: US-PFIZER INC-2011219370

PATIENT
  Sex: Female
  Weight: 69.388 kg

DRUGS (1)
  1. CHANTIX [Suspect]
     Indication: SMOKING CESSATION THERAPY
     Dosage: UNK
     Route: 048
     Dates: start: 20110912, end: 20110914

REACTIONS (5)
  - SCREAMING [None]
  - PERSONALITY CHANGE [None]
  - ANGER [None]
  - EMOTIONAL DISORDER [None]
  - CRYING [None]
